FAERS Safety Report 4478671-3 (Version None)
Quarter: 2004Q4

REPORT INFORMATION
  Report Type: 
  Country: None (occurrence: None)
  Receive Date: 20040923
  Receipt Date: 20040602
  Transmission Date: 20050328
  Serious: No
  Sender: FDA-Public Use
  Company Number: USA040669148

PATIENT
  Age: 77 Year
  Sex: Male

DRUGS (8)
  1. FORTEO [Suspect]
     Indication: OSTEOPOROSIS
     Dates: start: 20040512
  2. PROPRANOLOL [Concomitant]
  3. PROSCAR [Concomitant]
  4. RANITIDINE [Concomitant]
  5. CALCIUM [Concomitant]
  6. VITAMIN D [Concomitant]
  7. SPIRONOLACTONE [Concomitant]
  8. MAGNESIUM CHLORIDE [Concomitant]

REACTIONS (2)
  - EYE HAEMORRHAGE [None]
  - EYELID MARGIN CRUSTING [None]
